FAERS Safety Report 7199478-2 (Version None)
Quarter: 2010Q4

REPORT INFORMATION
  Report Type: 
  Country: None (occurrence: None)
  Receive Date: 20101215
  Receipt Date: 20101125
  Transmission Date: 20110411
  Serious: Yes (Other)
  Sender: FDA-Public Use
  Company Number: IL-ACCORD-007000

PATIENT
  Age: 19 Year
  Sex: Male

DRUGS (3)
  1. SIMVASTATIN [Suspect]
  2. CARVEDILOL [Suspect]
  3. ZOLPIDEM [Suspect]

REACTIONS (3)
  - DERMATITIS CONTACT [None]
  - OCCUPATIONAL EXPOSURE TO DRUG [None]
  - SKIN TEST POSITIVE [None]
